FAERS Safety Report 7229063-5 (Version None)
Quarter: 2011Q1

REPORT INFORMATION
  Report Type: 
  Country: None (occurrence: None)
  Receive Date: 20110117
  Receipt Date: 20110111
  Transmission Date: 20110831
  Serious: Yes (Death, Hospitalization)
  Sender: FDA-Public Use
  Company Number: PHHY2010DE85512

PATIENT
  Sex: Female
  Weight: 58 kg

DRUGS (3)
  1. ALISKIREN [Suspect]
     Indication: HYPERTENSION
     Dosage: 1 DF (150 MG), QD
     Route: 048
     Dates: start: 20081023
  2. ANTIHYPERTENSIVE DRUGS [Concomitant]
  3. ACE INHIBITOR NOS [Concomitant]

REACTIONS (3)
  - ATRIAL FIBRILLATION [None]
  - CARDIAC FAILURE [None]
  - DEATH [None]
